FAERS Safety Report 23508024 (Version 4)
Quarter: 2024Q2

REPORT INFORMATION
  Report Type: Spontaneous
  Country: FR (occurrence: FR)
  Receive Date: 20240209
  Receipt Date: 20240621
  Transmission Date: 20240716
  Serious: Yes (Other)
  Sender: FDA-Public Use
  Company Number: FR-ALXN-A202310456

PATIENT
  Age: 54 Year
  Sex: Female
  Weight: 68 kg

DRUGS (17)
  1. ULTOMIRIS [Suspect]
     Active Substance: RAVULIZUMAB-CWVZ
     Indication: Myasthenia gravis
     Dosage: 2700 MG, SINGLE
     Route: 065
     Dates: start: 20230602, end: 20230602
  2. ULTOMIRIS [Suspect]
     Active Substance: RAVULIZUMAB-CWVZ
     Dosage: 3300 MG, SINGLE
     Route: 065
     Dates: start: 20230615, end: 20230615
  3. ULTOMIRIS [Suspect]
     Active Substance: RAVULIZUMAB-CWVZ
     Dosage: 3300 MG, SINGLE
     Route: 065
     Dates: start: 20230810, end: 20230810
  4. ULTOMIRIS [Suspect]
     Active Substance: RAVULIZUMAB-CWVZ
     Dosage: 3300 MG, SINGLE
     Route: 065
     Dates: start: 20231013, end: 20231013
  5. ULTOMIRIS [Suspect]
     Active Substance: RAVULIZUMAB-CWVZ
     Dosage: 3300 MG, 8 WEEKLY
     Route: 065
  6. AZATHIOPRINE [Concomitant]
     Active Substance: AZATHIOPRINE
     Indication: Product used for unknown indication
     Dosage: 50 MG, TID
     Route: 065
  7. FOSAMAX [Concomitant]
     Active Substance: ALENDRONATE SODIUM
     Indication: Osteoporosis
     Dosage: 70 MG, QW
     Route: 065
  8. BACTRIM [Concomitant]
     Active Substance: SULFAMETHOXAZOLE\TRIMETHOPRIM
     Indication: Antibiotic prophylaxis
     Dosage: 400 UNK, QD
     Route: 065
  9. BACTRIM [Concomitant]
     Active Substance: SULFAMETHOXAZOLE\TRIMETHOPRIM
     Dosage: 80 MG, QD
     Route: 065
  10. PEN V                              /00001801/ [Concomitant]
     Indication: Product used for unknown indication
     Dosage: 1 MILLION IU, BID
     Route: 065
  11. VENLAFAXINE [Concomitant]
     Active Substance: VENLAFAXINE HYDROCHLORIDE
     Indication: Depression
     Dosage: 150 MG, QD
     Route: 065
  12. MESTINON [Concomitant]
     Active Substance: PYRIDOSTIGMINE BROMIDE
     Indication: Myasthenia gravis
     Dosage: 60 MG, TID
     Route: 065
  13. IMUREL                             /00001501/ [Concomitant]
     Indication: Myasthenia gravis
     Dosage: UNK
     Route: 065
  14. PREDNISONE [Concomitant]
     Active Substance: PREDNISONE
     Indication: Muscular weakness
     Dosage: 15 MG, MORNING
     Route: 065
  15. INIPOMP [Concomitant]
     Active Substance: PANTOPRAZOLE SODIUM
     Indication: Gastrooesophageal reflux disease
     Dosage: 20 MG, ONE TABLET EVENING
     Route: 065
  16. CALCIDOSE                          /00944201/ [Concomitant]
     Indication: Osteoporosis
     Dosage: 500 MG, UNK
     Route: 065
  17. ORACILLINE                         /00001801/ [Concomitant]
     Indication: Prophylaxis
     Dosage: 1 MIU 2 TABLETS DAILY
     Route: 065

REACTIONS (6)
  - Peripheral nerve injury [Recovering/Resolving]
  - Myasthenia gravis [Unknown]
  - Drug ineffective [Unknown]
  - Sinus tachycardia [Recovered/Resolved]
  - Ill-defined disorder [Unknown]
  - COVID-19 [Recovered/Resolved]

NARRATIVE: CASE EVENT DATE: 20230801
